FAERS Safety Report 6406037-5 (Version None)
Quarter: 2009Q4

REPORT INFORMATION
  Report Type: 
  Country: None (occurrence: None)
  Receive Date: 20091016
  Receipt Date: 20091016
  Transmission Date: 20100525
  Serious: Yes (Hospitalization)
  Sender: FDA-Public Use
  Company Number: None

PATIENT
  Sex: Male
  Weight: 104.4 kg

DRUGS (1)
  1. TAXOTERE [Suspect]
     Dosage: 173 MG

REACTIONS (10)
  - ANORECTAL DISCOMFORT [None]
  - ARTHRALGIA [None]
  - CALCULUS URETERIC [None]
  - HAEMOGLOBIN INCREASED [None]
  - HAEMORRHOIDS [None]
  - NEPHROLITHIASIS [None]
  - OSTEOARTHRITIS [None]
  - RECTAL HAEMORRHAGE [None]
  - SWELLING [None]
  - WHITE BLOOD CELL COUNT INCREASED [None]
